FAERS Safety Report 24659548 (Version 1)
Quarter: 2024Q4

REPORT INFORMATION
  Report Type: Spontaneous
  Country: US (occurrence: US)
  Receive Date: 20241125
  Receipt Date: 20241125
  Transmission Date: 20250114
  Serious: No
  Sender: VERTEX
  Company Number: US-VERTEX PHARMACEUTICALS-2024-018129

PATIENT

DRUGS (3)
  1. TRIKAFTA [Suspect]
     Active Substance: ELEXACAFTOR\IVACAFTOR\TEZACAFTOR
     Indication: Cystic fibrosis
     Dosage: UNK
     Route: 048
  2. TRIKAFTA [Suspect]
     Active Substance: ELEXACAFTOR\IVACAFTOR\TEZACAFTOR
     Dosage: REDUCED DOSE (2 ORANGE TABS MONDAY MORNING, 2 ORANGE THURSDAY EVENING
     Route: 048
  3. ITRACONAZOLE [Concomitant]
     Active Substance: ITRACONAZOLE

REACTIONS (1)
  - Infective pulmonary exacerbation of cystic fibrosis [Unknown]
